FAERS Safety Report 16767359 (Version 12)
Quarter: 2021Q3

REPORT INFORMATION
  Report Type: Spontaneous
  Country: US (occurrence: US)
  Receive Date: 20190903
  Receipt Date: 20210929
  Transmission Date: 20211014
  Serious: Yes (Hospitalization)
  Sender: FDA-Public Use
  Company Number: US-PFIZER INC-2018376563

PATIENT
  Age: 50 Year
  Sex: Male
  Weight: 111 kg

DRUGS (3)
  1. LYRICA [Suspect]
     Active Substance: PREGABALIN
     Dosage: 300 MG, 2X/DAY (USUALLY TAKES MEDICATION AT 05:00 AND 14:00)
  2. LYRICA [Suspect]
     Active Substance: PREGABALIN
     Indication: DIABETIC NEUROPATHY
     Dosage: 300 MG, 2X/DAY (1 CAPSULE TWICE A DAY)
     Route: 048
  3. LYRICA [Suspect]
     Active Substance: PREGABALIN
     Dosage: 25 MG, UNK

REACTIONS (6)
  - Pain [Unknown]
  - Illness [Unknown]
  - Agitation [Unknown]
  - Panic disorder [Unknown]
  - Intentional product misuse [Unknown]
  - Off label use [Unknown]
